FAERS Safety Report 18925272 (Version 2)
Quarter: 2021Q2

REPORT INFORMATION
  Report Type: Spontaneous
  Country: US (occurrence: US)
  Receive Date: 20210222
  Receipt Date: 20210420
  Transmission Date: 20210717
  Serious: No
  Sender: FDA-Public Use
  Company Number: US-VIFOR (INTERNATIONAL) INC.-VIT-2021-01050

PATIENT
  Age: 77 Year
  Sex: Female
  Weight: 49.94 kg

DRUGS (10)
  1. PRAVASTATIN. [Concomitant]
     Active Substance: PRAVASTATIN
  2. OMEPRAZOLE. [Concomitant]
     Active Substance: OMEPRAZOLE
  3. VELTASSA [Suspect]
     Active Substance: PATIROMER
     Indication: BLOOD POTASSIUM INCREASED
     Dates: start: 20210115
  4. BRILINTA [Concomitant]
     Active Substance: TICAGRELOR
  5. BABY ASPIRIN [Concomitant]
     Active Substance: ASPIRIN
  6. INVOKANA [Concomitant]
     Active Substance: CANAGLIFLOZIN
  7. LISINOPRIL. [Concomitant]
     Active Substance: LISINOPRIL
     Dosage: 2 PILLS 15 MG AND 2.5 MG ONCE A DAY
  8. GLYBURIDE. [Concomitant]
     Active Substance: GLYBURIDE
  9. VELTASSA [Suspect]
     Active Substance: PATIROMER
     Dates: start: 20210204
  10. METOPROLOL. [Concomitant]
     Active Substance: METOPROLOL

REACTIONS (3)
  - Headache [Recovered/Resolved]
  - Ill-defined disorder [Unknown]
  - Blood glucose increased [Not Recovered/Not Resolved]

NARRATIVE: CASE EVENT DATE: 2021
